FAERS Safety Report 5730843-3 (Version None)
Quarter: 2008Q2

REPORT INFORMATION
  Report Type: 
  Country: None (occurrence: None)
  Receive Date: 20080507
  Receipt Date: 20080425
  Transmission Date: 20081010
  Serious: Yes (Other)
  Sender: FDA-Public Use
  Company Number: US-PFIZER INC-2008036777

PATIENT
  Sex: Male
  Weight: 102.1 kg

DRUGS (2)
  1. LYRICA [Suspect]
     Indication: CONVULSION
  2. LISINOPRIL [Concomitant]
     Indication: HYPERTENSION

REACTIONS (1)
  - PNEUMOCYSTIS JIROVECI PNEUMONIA [None]
